FAERS Safety Report 24027904 (Version 2)
Quarter: 2025Q1

REPORT INFORMATION
  Report Type: Report from Study
  Country: US (occurrence: US)
  Receive Date: 20240628
  Receipt Date: 20250314
  Transmission Date: 20250409
  Serious: Yes (Other)
  Sender: GILEAD
  Company Number: US-GILEAD-2024-0678671

PATIENT
  Age: 63 Year
  Sex: Female
  Weight: 58 kg

DRUGS (32)
  1. AMBRISENTAN [Suspect]
     Active Substance: AMBRISENTAN
     Indication: Pulmonary arterial hypertension
     Route: 065
  2. REMODULIN [Suspect]
     Active Substance: TREPROSTINIL
     Indication: Pulmonary arterial hypertension
     Route: 041
     Dates: start: 20231204
  3. REMODULIN [Suspect]
     Active Substance: TREPROSTINIL
     Route: 041
  4. OXYBUTYNIN CHLORIDE [Concomitant]
     Active Substance: OXYBUTYNIN CHLORIDE
  5. HYDROCORTISONE [Concomitant]
     Active Substance: HYDROCORTISONE
  6. MIRALAX [Concomitant]
     Active Substance: POLYETHYLENE GLYCOL 3350
  7. TOPAMAX [Concomitant]
     Active Substance: TOPIRAMATE
  8. LYRICA [Concomitant]
     Active Substance: PREGABALIN
  9. TYLENOL [Concomitant]
     Active Substance: ACETAMINOPHEN
  10. SODIUM CHLORIDE [Concomitant]
     Active Substance: SODIUM CHLORIDE
  11. TADALAFIL [Concomitant]
     Active Substance: TADALAFIL
  12. BACLOFEN [Concomitant]
     Active Substance: BACLOFEN
     Dosage: UNK, BID
  13. LASIX [Concomitant]
     Active Substance: FUROSEMIDE
  14. ATIVAN [Concomitant]
     Active Substance: LORAZEPAM
  15. ALBUTEROL SULFATE [Concomitant]
     Active Substance: ALBUTEROL SULFATE
  16. PROCHLORPERAZINE EDISYLATE [Concomitant]
     Active Substance: PROCHLORPERAZINE EDISYLATE
  17. SIMVASTATIN [Concomitant]
     Active Substance: SIMVASTATIN
  18. OXYGEN [Concomitant]
     Active Substance: OXYGEN
  19. FARXIGA [Concomitant]
     Active Substance: DAPAGLIFLOZIN PROPANEDIOL
  20. METFORMIN HYDROCHLORIDE [Concomitant]
     Active Substance: METFORMIN HYDROCHLORIDE
  21. TRESIBA [Concomitant]
     Active Substance: INSULIN DEGLUDEC
  22. PREGABALIN [Concomitant]
     Active Substance: PREGABALIN
     Dosage: UNK, BID
     Dates: start: 202404
  23. ASCORBIC ACID\CRANBERRY [Concomitant]
     Active Substance: ASCORBIC ACID\CRANBERRY
  24. OMEPRAZOLE [Concomitant]
     Active Substance: OMEPRAZOLE
  25. LOSARTAN POTASSIUM [Concomitant]
     Active Substance: LOSARTAN POTASSIUM
  26. FLUTICASONE PROPIONATE\SALMETEROL XINAFOATE [Concomitant]
     Active Substance: FLUTICASONE PROPIONATE\SALMETEROL XINAFOATE
  27. FAMOTIDINE [Concomitant]
     Active Substance: FAMOTIDINE
  28. ESTRACE [Concomitant]
     Active Substance: ESTRADIOL
  29. TRAZODONE HCL [Concomitant]
     Active Substance: TRAZODONE HYDROCHLORIDE
  30. METHYLPREDNISOLONE [Concomitant]
     Active Substance: METHYLPREDNISOLONE
  31. BENZONATATE [Concomitant]
     Active Substance: BENZONATATE
  32. IBUPROFEN [Concomitant]
     Active Substance: IBUPROFEN

REACTIONS (6)
  - Hepatic cirrhosis [Unknown]
  - Neuropathy peripheral [Unknown]
  - Respiratory tract congestion [Unknown]
  - Feeling abnormal [Unknown]
  - Dyspnoea [Unknown]
  - Catheter site haemorrhage [Recovered/Resolved]
